FAERS Safety Report 18891166 (Version 1)
Quarter: 2021Q1

REPORT INFORMATION
  Report Type: Spontaneous
  Country: CA (occurrence: CA)
  Receive Date: 20210215
  Receipt Date: 20210215
  Transmission Date: 20210420
  Serious: Yes (Hospitalization, Other)
  Sender: FDA-Public Use
  Company Number: CA-B.I. PHARMACEUTICALS,INC./RIDGEFIELD-2021-BI-081972

PATIENT
  Age: 43 Year
  Sex: Female

DRUGS (15)
  1. ATROVENT [Suspect]
     Active Substance: IPRATROPIUM BROMIDE
     Indication: PRODUCT USED FOR UNKNOWN INDICATION
     Route: 055
  2. ADVAIR HFA [Suspect]
     Active Substance: FLUTICASONE PROPIONATE\SALMETEROL XINAFOATE
     Indication: ASTHMA
     Route: 065
  3. FOSAMAX [Concomitant]
     Active Substance: ALENDRONATE SODIUM
     Indication: PRODUCT USED FOR UNKNOWN INDICATION
     Route: 065
  4. VENTOLIN [Suspect]
     Active Substance: ALBUTEROL SULFATE
     Indication: ASTHMA
     Route: 065
  5. FLOVENT [Suspect]
     Active Substance: FLUTICASONE PROPIONATE
     Indication: ASTHMA
     Route: 065
  6. LOSEC [Concomitant]
     Active Substance: OMEPRAZOLE
     Indication: PRODUCT USED FOR UNKNOWN INDICATION
     Route: 065
  7. MEPOLIZUMAB [Suspect]
     Active Substance: MEPOLIZUMAB
     Indication: ASTHMA
     Route: 042
  8. WELLBUTRIN [Concomitant]
     Active Substance: BUPROPION HYDROCHLORIDE
     Indication: PRODUCT USED FOR UNKNOWN INDICATION
     Route: 065
  9. IRBESARTAN. [Concomitant]
     Active Substance: IRBESARTAN
     Indication: PRODUCT USED FOR UNKNOWN INDICATION
     Route: 065
  10. OMNARIS [Concomitant]
     Active Substance: CICLESONIDE
     Indication: PRODUCT USED FOR UNKNOWN INDICATION
     Route: 065
  11. CELEXA [Concomitant]
     Active Substance: CITALOPRAM HYDROBROMIDE
     Indication: PRODUCT USED FOR UNKNOWN INDICATION
     Route: 065
  12. MEPOLIZUMAB [Suspect]
     Active Substance: MEPOLIZUMAB
     Route: 042
  13. SPIRIVA [Suspect]
     Active Substance: TIOTROPIUM BROMIDE MONOHYDRATE
     Indication: PRODUCT USED FOR UNKNOWN INDICATION
     Route: 055
  14. MEPOLIZUMAB [Suspect]
     Active Substance: MEPOLIZUMAB
     Indication: PRODUCT USED FOR UNKNOWN INDICATION
     Route: 042
  15. VITAMIN D [VITAMIN D NOS] [Concomitant]
     Active Substance: VITAMIN D NOS
     Indication: PRODUCT USED FOR UNKNOWN INDICATION
     Route: 065

REACTIONS (21)
  - Dyspnoea [Recovered/Resolved]
  - Eczema [Recovered/Resolved]
  - Asthma [Recovered/Resolved]
  - Ear infection [Recovered/Resolved]
  - Ear pain [Recovered/Resolved]
  - Foot deformity [Recovered/Resolved]
  - Chest discomfort [Recovered/Resolved]
  - Ill-defined disorder [Recovered/Resolved]
  - Limb discomfort [Recovered/Resolved]
  - Sciatica [Recovered/Resolved]
  - Muscle spasms [Recovered/Resolved]
  - Syncope [Recovered/Resolved]
  - Wheezing [Recovered/Resolved]
  - Blood count abnormal [Recovered/Resolved]
  - Cough [Recovered/Resolved]
  - Middle insomnia [Recovered/Resolved]
  - Pain in extremity [Recovered/Resolved]
  - Paraesthesia [Recovered/Resolved]
  - Sputum discoloured [Recovered/Resolved]
  - Therapeutic product effect incomplete [Recovered/Resolved]
  - Emphysema [Recovered/Resolved]
